FAERS Safety Report 5095798-6 (Version None)
Quarter: 2006Q3

REPORT INFORMATION
  Report Type: 
  Country: None (occurrence: None)
  Receive Date: 20060905
  Receipt Date: 20060825
  Transmission Date: 20061208
  Serious: Yes (Hospitalization)
  Sender: FDA-Public Use
  Company Number: DE-BRISTOL-MYERS SQUIBB COMPANY-13490479

PATIENT
  Age: 61 Year
  Sex: Female
  Weight: 63 kg

DRUGS (7)
  1. CYCLOPHOSPHAMIDE [Suspect]
     Indication: CHEMOTHERAPY
     Route: 042
     Dates: start: 20060720, end: 20060817
  2. PACLITAXEL [Suspect]
     Indication: BREAST CANCER
     Route: 042
     Dates: start: 20060608, end: 20060706
  3. EPIRUBICIN [Suspect]
     Indication: BREAST CANCER
     Route: 042
     Dates: start: 20060427, end: 20060526
  4. EPOETIN BETA [Concomitant]
     Route: 058
     Dates: start: 20060422
  5. NEULASTA [Concomitant]
     Route: 058
     Dates: start: 20060428, end: 20060818
  6. DEXAMETHASONE [Concomitant]
     Route: 048
     Dates: start: 20060818, end: 20060820
  7. CIPROFLOXACIN [Concomitant]
     Route: 048
     Dates: start: 20060821, end: 20060823

REACTIONS (7)
  - ANAEMIA [None]
  - FATIGUE [None]
  - HYPOTENSION [None]
  - HYPOTONIA [None]
  - LEUKOPENIA [None]
  - NEUTROPENIA [None]
  - THROMBOCYTOPENIA [None]
